FAERS Safety Report 20758638 (Version 1)
Quarter: 2022Q2

REPORT INFORMATION
  Report Type: Spontaneous
  Country: CN (occurrence: None)
  Receive Date: 20220427
  Receipt Date: 20220427
  Transmission Date: 20220721
  Serious: Yes (Other)
  Sender: FDA-Public Use
  Company Number: CN-ROCHE-3082657

PATIENT
  Age: 55 Year
  Sex: Female

DRUGS (9)
  1. MABTHERA [Suspect]
     Active Substance: RITUXIMAB
     Indication: Follicular lymphoma
     Dosage: 24/MAR/2020, 20/APR/2020, 13/MAY/2020, 10/JUN/2020, 06/JUL/2020 AND 30/JUL/2020
     Route: 065
  2. MABTHERA [Suspect]
     Active Substance: RITUXIMAB
     Dosage: 21/AUG/2020 AND 12/SEP/2020
     Route: 065
  3. MABTHERA [Suspect]
     Active Substance: RITUXIMAB
     Route: 065
  4. CYCLOPHOSPHAMIDE [Concomitant]
     Active Substance: CYCLOPHOSPHAMIDE
     Indication: Follicular lymphoma
     Dosage: 24/MAR/2020, 20/APR/2020, 13/MAY/2020, 10/JUN/2020, 06/JUL/2020 AND 30/JUL/2020
  5. DOXORUBICIN [Concomitant]
     Active Substance: DOXORUBICIN
     Indication: Follicular lymphoma
     Dosage: 24/MAR/2020, 20/APR/2020, 13/MAY/2020, 10/JUN/2020, 06/JUL/2020 AND 30/JUL/2020
  6. VINCRISTINE [Concomitant]
     Active Substance: VINCRISTINE
     Indication: Follicular lymphoma
     Dosage: 24/MAR/2020, 20/APR/2020, 13/MAY/2020, 10/JUN/2020, 06/JUL/2020 AND 30/JUL/2020
  7. PREDNISONE [Concomitant]
     Active Substance: PREDNISONE
     Indication: Follicular lymphoma
     Dosage: 24/MAR/2020, 20/APR/2020, 13/MAY/2020, 10/JUN/2020, 06/JUL/2020 AND 30/JUL/2020
  8. LENALIDOMIDE [Concomitant]
     Active Substance: LENALIDOMIDE
     Indication: Follicular lymphoma
     Dosage: EVERY OTHER DAY
     Route: 048
     Dates: start: 20210115
  9. BENDAMUSTINE [Concomitant]
     Active Substance: BENDAMUSTINE
     Indication: Follicular lymphoma

REACTIONS (4)
  - Acute kidney injury [Unknown]
  - Platelet count decreased [Unknown]
  - Disease recurrence [Unknown]
  - Hyperpyrexia [Unknown]

NARRATIVE: CASE EVENT DATE: 20201217
